FAERS Safety Report 25341376 (Version 3)
Quarter: 2025Q2

REPORT INFORMATION
  Report Type: Spontaneous
  Country: GB (occurrence: GB)
  Receive Date: 20250521
  Receipt Date: 20250626
  Transmission Date: 20250717
  Serious: Yes (Hospitalization)
  Sender: MYLAN
  Company Number: GB-MYLANLABS-2025M1015854

PATIENT
  Age: 39 Year
  Sex: Male
  Weight: 81.6 kg

DRUGS (48)
  1. CLOZARIL [Suspect]
     Active Substance: CLOZAPINE
     Indication: Schizophrenia
     Route: 048
  2. CLOZARIL [Suspect]
     Active Substance: CLOZAPINE
  3. CLOZARIL [Suspect]
     Active Substance: CLOZAPINE
  4. CLOZARIL [Suspect]
     Active Substance: CLOZAPINE
     Route: 048
  5. CLOZARIL [Suspect]
     Active Substance: CLOZAPINE
     Dosage: 50 MILLIGRAM, BID
     Route: 048
     Dates: start: 20250514
  6. CLOZARIL [Suspect]
     Active Substance: CLOZAPINE
     Dosage: 50 MILLIGRAM, BID
     Dates: start: 20250514
  7. CLOZARIL [Suspect]
     Active Substance: CLOZAPINE
     Dosage: 50 MILLIGRAM, BID
     Dates: start: 20250514
  8. CLOZARIL [Suspect]
     Active Substance: CLOZAPINE
     Dosage: 50 MILLIGRAM, BID
     Route: 048
     Dates: start: 20250514
  9. CLOZARIL [Suspect]
     Active Substance: CLOZAPINE
     Dosage: UNK UNK, BID
     Route: 048
     Dates: start: 202505
  10. CLOZARIL [Suspect]
     Active Substance: CLOZAPINE
     Dosage: UNK UNK, BID
     Route: 048
     Dates: start: 202505
  11. CLOZARIL [Suspect]
     Active Substance: CLOZAPINE
     Dosage: UNK UNK, BID
     Dates: start: 202505
  12. CLOZARIL [Suspect]
     Active Substance: CLOZAPINE
     Dosage: UNK UNK, BID
     Dates: start: 202505
  13. PROMETHAZINE HYDROCHLORIDE [Concomitant]
     Active Substance: PROMETHAZINE HYDROCHLORIDE
     Dosage: 25 MILLIGRAM, TID
     Dates: start: 20250516
  14. PROMETHAZINE HYDROCHLORIDE [Concomitant]
     Active Substance: PROMETHAZINE HYDROCHLORIDE
     Dosage: 25 MILLIGRAM, TID
     Route: 048
     Dates: start: 20250516
  15. PROMETHAZINE HYDROCHLORIDE [Concomitant]
     Active Substance: PROMETHAZINE HYDROCHLORIDE
     Dosage: 25 MILLIGRAM, TID
     Route: 048
     Dates: start: 20250516
  16. PROMETHAZINE HYDROCHLORIDE [Concomitant]
     Active Substance: PROMETHAZINE HYDROCHLORIDE
     Dosage: 25 MILLIGRAM, TID
     Dates: start: 20250516
  17. CLONAZEPAM [Concomitant]
     Active Substance: CLONAZEPAM
     Dosage: 500 MICROGRAM, QID
     Dates: start: 20250516
  18. CLONAZEPAM [Concomitant]
     Active Substance: CLONAZEPAM
     Dosage: 500 MICROGRAM, QID
     Route: 048
     Dates: start: 20250516
  19. CLONAZEPAM [Concomitant]
     Active Substance: CLONAZEPAM
     Dosage: 500 MICROGRAM, QID
     Route: 048
     Dates: start: 20250516
  20. CLONAZEPAM [Concomitant]
     Active Substance: CLONAZEPAM
     Dosage: 500 MICROGRAM, QID
     Dates: start: 20250516
  21. LORAZEPAM [Concomitant]
     Active Substance: LORAZEPAM
  22. LORAZEPAM [Concomitant]
     Active Substance: LORAZEPAM
     Route: 048
  23. LORAZEPAM [Concomitant]
     Active Substance: LORAZEPAM
     Route: 048
  24. LORAZEPAM [Concomitant]
     Active Substance: LORAZEPAM
  25. HALOPERIDOL [Concomitant]
     Active Substance: HALOPERIDOL
     Dates: start: 20250512, end: 20250516
  26. HALOPERIDOL [Concomitant]
     Active Substance: HALOPERIDOL
     Dates: start: 20250512, end: 20250516
  27. HALOPERIDOL [Concomitant]
     Active Substance: HALOPERIDOL
     Route: 048
     Dates: start: 20250512, end: 20250516
  28. HALOPERIDOL [Concomitant]
     Active Substance: HALOPERIDOL
     Route: 048
     Dates: start: 20250512, end: 20250516
  29. HALOPERIDOL [Concomitant]
     Active Substance: HALOPERIDOL
  30. HALOPERIDOL [Concomitant]
     Active Substance: HALOPERIDOL
  31. HALOPERIDOL [Concomitant]
     Active Substance: HALOPERIDOL
     Route: 048
  32. HALOPERIDOL [Concomitant]
     Active Substance: HALOPERIDOL
     Route: 048
  33. OLANZAPINE [Concomitant]
     Active Substance: OLANZAPINE
  34. OLANZAPINE [Concomitant]
     Active Substance: OLANZAPINE
     Route: 065
  35. OLANZAPINE [Concomitant]
     Active Substance: OLANZAPINE
     Route: 065
  36. OLANZAPINE [Concomitant]
     Active Substance: OLANZAPINE
  37. Depixol [Concomitant]
  38. Depixol [Concomitant]
     Route: 065
  39. Depixol [Concomitant]
     Route: 065
  40. Depixol [Concomitant]
  41. ZUCLOPENTHIXOL [Concomitant]
     Active Substance: ZUCLOPENTHIXOL
  42. ZUCLOPENTHIXOL [Concomitant]
     Active Substance: ZUCLOPENTHIXOL
     Route: 065
  43. ZUCLOPENTHIXOL [Concomitant]
     Active Substance: ZUCLOPENTHIXOL
     Route: 065
  44. ZUCLOPENTHIXOL [Concomitant]
     Active Substance: ZUCLOPENTHIXOL
  45. DIAZEPAM [Concomitant]
     Active Substance: DIAZEPAM
  46. DIAZEPAM [Concomitant]
     Active Substance: DIAZEPAM
     Route: 065
  47. DIAZEPAM [Concomitant]
     Active Substance: DIAZEPAM
     Route: 065
  48. DIAZEPAM [Concomitant]
     Active Substance: DIAZEPAM

REACTIONS (4)
  - Hospitalisation [Unknown]
  - Peripheral swelling [Recovering/Resolving]
  - Leukocytosis [Unknown]
  - Eosinophilia [Unknown]

NARRATIVE: CASE EVENT DATE: 20250501
